FAERS Safety Report 19393206 (Version 1)
Quarter: 2021Q2

REPORT INFORMATION
  Report Type: Spontaneous
  Country: US (occurrence: US)
  Receive Date: 20210608
  Receipt Date: 20210608
  Transmission Date: 20210717
  Serious: No
  Sender: FDA-Public Use
  Company Number: None

PATIENT
  Age: 61 Year
  Sex: Female
  Weight: 85.05 kg

DRUGS (2)
  1. DEFINITY [Concomitant]
     Active Substance: PERFLUTREN
     Dates: start: 20210607, end: 20210607
  2. DEFINITY [Suspect]
     Active Substance: PERFLUTREN
     Indication: STRESS ECHOCARDIOGRAM
     Dosage: ?          OTHER FREQUENCY:ONCE;?
     Route: 040
     Dates: start: 20210607, end: 20210607

REACTIONS (1)
  - Back pain [None]

NARRATIVE: CASE EVENT DATE: 20210607
